FAERS Safety Report 9031295 (Version 2)
Quarter: 2013Q1

REPORT INFORMATION
  Report Type: Spontaneous
  Country: US (occurrence: US)
  Receive Date: 20130124
  Receipt Date: 20130131
  Transmission Date: 20140127
  Serious: Yes (Other)
  Sender: FDA-Public Use
  Company Number: US-US-EMD SERONO, INC.-7169160

PATIENT
  Sex: Female

DRUGS (2)
  1. REBIF [Suspect]
     Indication: PRODUCT USED FOR UNKNOWN INDICATION
     Dates: end: 201204
  2. REBIF [Suspect]
     Route: 058
     Dates: start: 20130103

REACTIONS (3)
  - Arrested labour [Recovered/Resolved]
  - Maternal exposure timing unspecified [Recovered/Resolved]
  - Normal newborn [Recovered/Resolved]
